FAERS Safety Report 9962479 (Version 1)
Quarter: 2014Q1

REPORT INFORMATION
  Report Type: Report from Study
  Country: US (occurrence: US)
  Receive Date: 20140305
  Receipt Date: 20140305
  Transmission Date: 20141002
  Serious: No
  Sender: FDA-Public Use
  Company Number: US-ABBVIE-13P-163-1116851-00

PATIENT
  Age: 45 Year
  Sex: Female
  Weight: 93.07 kg

DRUGS (10)
  1. HUMIRA [Suspect]
     Indication: RHEUMATOID ARTHRITIS
     Dates: start: 20130628
  2. METHOTREXATE [Concomitant]
     Indication: RHEUMATOID ARTHRITIS
  3. SINGULAIR [Concomitant]
     Indication: ASTHMA
  4. ALBUTEROL [Concomitant]
     Indication: ASTHMA
  5. FOLIC ACID [Concomitant]
     Indication: VITAMIN SUPPLEMENTATION
  6. CALCIUM VITAMIN D [Concomitant]
     Indication: SUPPLEMENTATION THERAPY
  7. PREDNISONE [Concomitant]
     Indication: RHEUMATOID ARTHRITIS
  8. MAGNESIUM [Concomitant]
     Indication: MINERAL SUPPLEMENTATION
  9. CYMBALTA [Concomitant]
     Indication: FIBROMYALGIA
  10. CHLOR TRIMETON [Concomitant]
     Indication: SEASONAL ALLERGY

REACTIONS (2)
  - Fatigue [Recovered/Resolved]
  - Asthenia [Recovered/Resolved]
